FAERS Safety Report 5406597-7 (Version None)
Quarter: 2007Q3

REPORT INFORMATION
  Report Type: 
  Country: None (occurrence: None)
  Receive Date: 20070806
  Receipt Date: 20070725
  Transmission Date: 20080115
  Serious: Yes (Hospitalization)
  Sender: FDA-Public Use
  Company Number: FR-PFIZER INC-2007062220

PATIENT
  Sex: Female

DRUGS (10)
  1. ZOLOFT [Suspect]
     Route: 048
  2. MEDIATENSYL [Suspect]
     Route: 048
  3. HYPERIUM [Suspect]
     Route: 048
  4. STILNOX [Suspect]
     Route: 048
     Dates: end: 20070414
  5. LASIX [Concomitant]
     Dosage: DAILY DOSE:40MG
     Route: 048
  6. COUMADIN [Concomitant]
     Dosage: DAILY DOSE:2MG
     Route: 048
     Dates: end: 20070414
  7. SERETIDE [Concomitant]
     Dosage: TEXT:250/25MCG PER DOSE
     Route: 055
     Dates: end: 20070414
  8. ESBERIVEN FORTE [Concomitant]
     Route: 048
     Dates: end: 20070414
  9. ECONAZOLE NITRATE [Concomitant]
     Route: 061
     Dates: end: 20070414
  10. ACETAMINOPHEN [Concomitant]
     Route: 048
     Dates: end: 20070414

REACTIONS (1)
  - FALL [None]
